FAERS Safety Report 21222075 (Version 1)
Quarter: 2022Q3

REPORT INFORMATION
  Report Type: Spontaneous
  Country: NL (occurrence: NL)
  Receive Date: 20220817
  Receipt Date: 20220817
  Transmission Date: 20221027
  Serious: Yes (Other)
  Sender: FDA-Public Use
  Company Number: None

PATIENT
  Age: 11 Year
  Sex: Male
  Weight: 33 kg

DRUGS (3)
  1. DOXYCYCLINE [Suspect]
     Active Substance: DOXYCYCLINE
     Indication: Facial paresis
     Dosage: 100 MILLIGRAM, 12 HOURS (BID) (INITIALLY 2X PER DAY 100 MG)
     Route: 065
     Dates: start: 20220701
  2. DOXYCYCLINE [Suspect]
     Active Substance: DOXYCYCLINE
     Indication: Borrelia infection
     Dosage: 75 MILLIGRAM, 12 HOURS (BID) (SELF-ADJUSTED TO 2X PER DAY 75 MG)
     Route: 065
     Dates: start: 20220703
  3. PREDNISOLONE [Concomitant]
     Active Substance: PREDNISOLONE
     Dosage: 35 MILLIGRAM (CAPSULE, 35 MG (MILLIGRAM))
     Route: 065

REACTIONS (6)
  - Loss of consciousness [Not Recovered/Not Resolved]
  - Overdose [Unknown]
  - Malaise [Recovering/Resolving]
  - Presyncope [Recovering/Resolving]
  - Medication error [Unknown]
  - Vomiting [Not Recovered/Not Resolved]

NARRATIVE: CASE EVENT DATE: 20220701
